FAERS Safety Report 5059014-3 (Version None)
Quarter: 2006Q3

REPORT INFORMATION
  Report Type: 
  Country: None (occurrence: None)
  Receive Date: 20060719
  Receipt Date: 20060705
  Transmission Date: 20061208
  Serious: Yes (Life-Threatening, Other)
  Sender: FDA-Public Use
  Company Number: 163-20785-06050182

PATIENT
  Age: 81 Year
  Sex: Male

DRUGS (2)
  1. THALOMID [Suspect]
     Indication: AMYLOIDOSIS
     Dosage: 200 MG, DAILY, ORAL
     Route: 048
     Dates: start: 20060101, end: 20060501
  2. COUMADIN [Concomitant]

REACTIONS (2)
  - SUBDURAL HAEMATOMA [None]
  - SYNCOPE [None]
